FAERS Safety Report 5467998-4 (Version None)
Quarter: 2007Q3

REPORT INFORMATION
  Report Type: 
  Country: None (occurrence: None)
  Receive Date: 20070925
  Receipt Date: 20070925
  Transmission Date: 20080115
  Serious: Yes (Hospitalization)
  Sender: FDA-Public Use
  Company Number: None

PATIENT
  Sex: Female

DRUGS (4)
  1. CARBOPLATIN [Suspect]
     Indication: SMALL CELL LUNG CANCER STAGE UNSPECIFIED
     Dosage: 358MG/435MG Q 21DAYS IV
     Route: 042
     Dates: start: 20070207
  2. CARBOPLATIN [Suspect]
     Indication: SMALL CELL LUNG CANCER STAGE UNSPECIFIED
     Dosage: 358MG/435MG Q 21DAYS IV
     Route: 042
     Dates: start: 20070307
  3. IRINOTECAN HCL [Suspect]
     Indication: SMALL CELL LUNG CANCER STAGE UNSPECIFIED
     Dosage: 81MG QD 8 DAYS/Q 21 DAYS IV
     Route: 042
     Dates: start: 20070207
  4. IRINOTECAN HCL [Suspect]
     Indication: SMALL CELL LUNG CANCER STAGE UNSPECIFIED
     Dosage: 81MG QD 8 DAYS/Q 21 DAYS IV
     Route: 042
     Dates: start: 20070307

REACTIONS (7)
  - ARTERIAL THROMBOSIS LIMB [None]
  - BACK PAIN [None]
  - DISEASE RECURRENCE [None]
  - FACE OEDEMA [None]
  - NAUSEA [None]
  - SUPERIOR VENA CAVAL OCCLUSION [None]
  - WEIGHT DECREASED [None]
